FAERS Safety Report 17278719 (Version 1)
Quarter: 2020Q1

REPORT INFORMATION
  Report Type: Spontaneous
  Country: DE (occurrence: DE)
  Receive Date: 20200116
  Receipt Date: 20200116
  Transmission Date: 20200409
  Serious: Yes (Other)
  Sender: FDA-Public Use
  Company Number: DE-PFIZER INC-2020018312

PATIENT
  Sex: Female

DRUGS (2)
  1. KADCYLA [Suspect]
     Active Substance: ADO-TRASTUZUMAB EMTANSINE
     Indication: BREAST CANCER METASTATIC
     Dosage: UNK
     Dates: start: 201905
  2. EXEMESTANE. [Suspect]
     Active Substance: EXEMESTANE
     Indication: NEOPLASM PROGRESSION
     Dosage: UNK

REACTIONS (10)
  - Pyrexia [Unknown]
  - Paraesthesia [Unknown]
  - Urinary retention [Unknown]
  - Headache [Unknown]
  - Haemorrhagic diathesis [Unknown]
  - Fatigue [Unknown]
  - Weight decreased [Unknown]
  - Abdominal distension [Unknown]
  - Neoplasm progression [Not Recovered/Not Resolved]
  - Anaemia [Unknown]
